FAERS Safety Report 5827219-7 (Version None)
Quarter: 2008Q3

REPORT INFORMATION
  Report Type: 
  Country: None (occurrence: None)
  Receive Date: 20080730
  Receipt Date: 20080724
  Transmission Date: 20090109
  Serious: Yes (Disabling, Other)
  Sender: FDA-Public Use
  Company Number: US-MERCK-0805USA00712

PATIENT
  Age: 62 Year
  Sex: Female

DRUGS (3)
  1. FOSAMAX [Suspect]
     Indication: OSTEOPOROSIS
     Route: 048
     Dates: start: 20010319, end: 20061201
  2. MINOCYCLINE [Concomitant]
     Indication: ACNE
     Route: 065
     Dates: start: 19960101
  3. HORMONES (UNSPECIFIED) [Concomitant]
     Route: 065
     Dates: start: 19880101, end: 20061201

REACTIONS (9)
  - BLOOD CHOLESTEROL INCREASED [None]
  - CONTUSION [None]
  - FALL [None]
  - INSOMNIA [None]
  - JAW DISORDER [None]
  - OSTEOMYELITIS [None]
  - OSTEONECROSIS [None]
  - PAIN [None]
  - RIB FRACTURE [None]
